FAERS Safety Report 9031822 (Version 2)
Quarter: 2013Q1

REPORT INFORMATION
  Report Type: Report from Study
  Country: DE (occurrence: DE)
  Receive Date: 20130124
  Receipt Date: 20130221
  Transmission Date: 20140127
  Serious: Yes (Hospitalization)
  Sender: FDA-Public Use
  Company Number: DE-GENZYME-CAMP-1002686

PATIENT
  Age: 38 Year
  Sex: Male
  Weight: 87 kg

DRUGS (3)
  1. ALEMTUZUMAB [Suspect]
     Indication: MULTIPLE SCLEROSIS
     Dosage: 12 MG, QD
     Route: 042
     Dates: start: 20111107, end: 20111109
  2. ALEMTUZUMAB [Suspect]
     Dosage: 12 MG, QD
     Route: 042
     Dates: start: 20101101, end: 20101105
  3. REBIF [Concomitant]
     Indication: MULTIPLE SCLEROSIS
     Dosage: 44U/G, 3X/WEEKLY
     Route: 058
     Dates: start: 20080818, end: 20100815

REACTIONS (1)
  - Basedow^s disease [Not Recovered/Not Resolved]
